FAERS Safety Report 5857189-7 (Version None)
Quarter: 2008Q3

REPORT INFORMATION
  Report Type: 
  Country: None (occurrence: None)
  Receive Date: 20080821
  Receipt Date: 20080808
  Transmission Date: 20090109
  Serious: Yes (Hospitalization)
  Sender: FDA-Public Use
  Company Number: 2008BI014202

PATIENT
  Age: 43 Year
  Sex: Female

DRUGS (4)
  1. AVONEX [Suspect]
     Indication: MULTIPLE SCLEROSIS
     Dosage: 30 UG; QW; IM
     Route: 030
     Dates: start: 20061101
  2. DEFLAZACORT [Concomitant]
  3. MIOSAN [Concomitant]
  4. NARAMIG [Concomitant]

REACTIONS (7)
  - ANAEMIA [None]
  - DIZZINESS [None]
  - HYPERGLYCAEMIA [None]
  - MALAISE [None]
  - MYALGIA [None]
  - PYREXIA [None]
  - VISUAL ACUITY REDUCED [None]
